FAERS Safety Report 19798606 (Version 1)
Quarter: 2021Q3

REPORT INFORMATION
  Report Type: Spontaneous
  Country: US (occurrence: US)
  Receive Date: 20210907
  Receipt Date: 20210907
  Transmission Date: 20211014
  Serious: Yes (Other)
  Sender: FDA-Public Use
  Company Number: US-AUROBINDO-AUR-APL-2021-037381

PATIENT
  Age: 83 Year
  Sex: Female
  Weight: 56 kg

DRUGS (3)
  1. IBANDRONATE SODIUM TABLET 150 MG [Suspect]
     Active Substance: IBANDRONATE SODIUM
     Dosage: 1 DOSAGE FORM, EVERY MONTH
     Route: 065
     Dates: start: 20210211
  2. IBANDRONATE SODIUM TABLET 150 MG [Suspect]
     Active Substance: IBANDRONATE SODIUM
     Dosage: 1 DOSAGE FORM, EVERY MONTH
     Dates: start: 20210111
  3. IBANDRONATE SODIUM TABLET 150 MG [Suspect]
     Active Substance: IBANDRONATE SODIUM
     Indication: OSTEOPOROSIS
     Dosage: 1 DOSAGE FORM, EVERY MONTH
     Route: 065
     Dates: start: 20201211

REACTIONS (3)
  - Dental caries [Unknown]
  - Somnolence [Unknown]
  - Macular degeneration [Unknown]

NARRATIVE: CASE EVENT DATE: 20210116
